FAERS Safety Report 7462709-5 (Version None)
Quarter: 2011Q2

REPORT INFORMATION
  Report Type: 
  Country: None (occurrence: None)
  Receive Date: 20110506
  Receipt Date: 20110328
  Transmission Date: 20111010
  Serious: Yes (Death, Hospitalization, Other)
  Sender: FDA-Public Use
  Company Number: US-BAYER-201030082NA

PATIENT
  Age: 72 Year
  Sex: Male
  Weight: 107.71 kg

DRUGS (14)
  1. HYDROCHLOROTHIAZIDE [Concomitant]
  2. MAGNESIUM SULFATE [Concomitant]
     Dosage: UNK
     Route: 042
     Dates: start: 20001019, end: 20001019
  3. MANNITOL [Concomitant]
     Dosage: UNK
     Route: 042
     Dates: start: 20001019, end: 20001019
  4. TRASYLOL [Suspect]
     Dosage: 1 BAG OF CONITNUOUS IV DRIP
     Route: 042
     Dates: start: 20001019, end: 20001020
  5. LASIX [Concomitant]
  6. FENTANYL [Concomitant]
     Dosage: UNK
     Route: 042
     Dates: start: 20001019, end: 20001019
  7. NEOMYCIN [Concomitant]
     Dosage: UNK
     Route: 042
     Dates: start: 20001019, end: 20001019
  8. COZAAR [Concomitant]
  9. VERSED [Concomitant]
     Dosage: UNK
     Route: 042
     Dates: start: 20001019, end: 20001019
  10. HEPARIN [Concomitant]
     Dosage: UNK
     Route: 042
     Dates: start: 20001019, end: 20001019
  11. TRASYLOL [Suspect]
     Indication: CORONARY ARTERY BYPASS
     Dosage: 200 ML, UNK
     Route: 042
     Dates: start: 20001019, end: 20001020
  12. PAPAVERINE [Concomitant]
     Dosage: UNK
     Route: 042
     Dates: start: 20001019, end: 20001019
  13. SULAR [Concomitant]
  14. PRANDIN [Concomitant]

REACTIONS (13)
  - PAIN [None]
  - DEPRESSION [None]
  - ANXIETY [None]
  - ANHEDONIA [None]
  - MULTI-ORGAN FAILURE [None]
  - FEAR [None]
  - RENAL FAILURE ACUTE [None]
  - RENAL FAILURE [None]
  - INJURY [None]
  - DEATH [None]
  - RENAL INJURY [None]
  - EMOTIONAL DISTRESS [None]
  - DISABILITY [None]
